FAERS Safety Report 5226247-2 (Version None)
Quarter: 2007Q1

REPORT INFORMATION
  Report Type: 
  Country: None (occurrence: None)
  Receive Date: 20070129
  Receipt Date: 20070115
  Transmission Date: 20070707
  Serious: Yes (Hospitalization)
  Sender: FDA-Public Use
  Company Number: HQWYE792418JAN07

PATIENT
  Age: 30 Year
  Sex: Male

DRUGS (3)
  1. EFFEXOR [Suspect]
     Dosage: OVERDOSE AMOUNT 750 MG;
     Dates: start: 20020801, end: 20020801
  2. ALPRAZOLAM [Suspect]
     Dosage: OVERDOSE AMOUNT 10 MG;
     Dates: start: 20020801, end: 20020801
  3. INDORAMIN [Suspect]
     Dosage: OVERDOSE AMOUNT UNKNOWN;
     Dates: start: 20020801, end: 20020801

REACTIONS (5)
  - ELECTROCARDIOGRAM P WAVE ABNORMAL [None]
  - HYPOTENSION [None]
  - MIOSIS [None]
  - MULTIPLE DRUG OVERDOSE [None]
  - SOMNOLENCE [None]
